FAERS Safety Report 8816803 (Version 1)
Quarter: 2012Q4

REPORT INFORMATION
  Report Type: Spontaneous
  Country: GB (occurrence: None)
  Receive Date: 20121001
  Receipt Date: 20121001
  Transmission Date: 20130627
  Serious: Yes (Disabling)
  Sender: FDA-Public Use
  Company Number: GER/UKI/12/0026030

PATIENT
  Age: 68 Year
  Weight: 96 kg

DRUGS (3)
  1. ATORVASTATIN [Suspect]
     Indication: CHOLESTEROL HIGH
     Route: 048
     Dates: start: 20120227, end: 20120815
  2. BENDROFLUMETHIAZIDE [Concomitant]
  3. LISINOPRIL [Concomitant]

REACTIONS (3)
  - Pain [None]
  - Pain in extremity [None]
  - Hypoaesthesia [None]
